FAERS Safety Report 15523174 (Version 1)
Quarter: 2018Q4

REPORT INFORMATION
  Report Type: Spontaneous
  Country: FR (occurrence: FR)
  Receive Date: 20181018
  Receipt Date: 20181018
  Transmission Date: 20190205
  Serious: Yes (Other)
  Sender: FDA-Public Use
  Company Number: FR-TEVA-2018-FR-965492

PATIENT
  Age: 78 Year
  Sex: Male
  Weight: 48 kg

DRUGS (6)
  1. TEGRETOL [Interacting]
     Active Substance: CARBAMAZEPINE
     Indication: PSYCHOTIC DISORDER
     Dosage: 200 MILLIGRAM DAILY; SCORED
     Route: 048
  2. TERCIAN 25 MG, COMPRIM? PELLICUL? S?CABLE [Interacting]
     Active Substance: CYAMEMAZINE
     Indication: PSYCHOTIC DISORDER
     Dosage: 25 MILLIGRAM DAILY; SCORED
     Route: 048
  3. LANSOPRAZOLE. [Suspect]
     Active Substance: LANSOPRAZOLE
     Indication: GASTROOESOPHAGEAL REFLUX DISEASE
     Route: 048
  4. HALDOL [Interacting]
     Active Substance: HALOPERIDOL
     Indication: PSYCHOTIC DISORDER
     Dosage: 10 MILLIGRAM DAILY;
     Route: 048
  5. TERCIAN 100 MG, COMPRIM? PELLICUL? S?CABLE [Interacting]
     Active Substance: CYAMEMAZINE
     Indication: PSYCHOTIC DISORDER
     Dosage: 50 MILLIGRAM DAILY; SCORED
     Route: 048
  6. PARKINANE L P 5 MG, G?LULE ? LIB?RATION PROLONG?E [Interacting]
     Active Substance: TRIHEXYPHENIDYL HYDROCHLORIDE
     Indication: PSYCHOTIC DISORDER
     Dosage: 5 MILLIGRAM DAILY;
     Route: 048

REACTIONS (2)
  - Drug interaction [Unknown]
  - International normalised ratio decreased [Recovered/Resolved]

NARRATIVE: CASE EVENT DATE: 20160616
